FAERS Safety Report 13883455 (Version 1)
Quarter: 2017Q3

REPORT INFORMATION
  Report Type: Spontaneous
  Country: US (occurrence: US)
  Receive Date: 20170818
  Receipt Date: 20170818
  Transmission Date: 20171127
  Serious: No
  Sender: FDA-Public Use
  Company Number: GXBR2017US002200

PATIENT
  Sex: Female
  Weight: 62.59 kg

DRUGS (2)
  1. OMEPRAZOLE DELAYED RELEASE CAPSULES [Suspect]
     Active Substance: OMEPRAZOLE
     Indication: OESOPHAGEAL DISORDER
  2. OMEPRAZOLE DELAYED RELEASE CAPSULES [Suspect]
     Active Substance: OMEPRAZOLE
     Indication: GASTROOESOPHAGEAL REFLUX DISEASE
     Dosage: 40 MG, QD
     Route: 065
     Dates: start: 20170710

REACTIONS (3)
  - Nausea [Unknown]
  - Diarrhoea [Unknown]
  - Weight decreased [Unknown]
